FAERS Safety Report 5340663-X (Version None)
Quarter: 2007Q2

REPORT INFORMATION
  Report Type: 
  Country: None (occurrence: None)
  Receive Date: 20070405
  Receipt Date: 20061227
  Transmission Date: 20071010
  Serious: No
  Sender: FDA-Public Use
  Company Number: US200612000355

PATIENT
  Age: 54 Year
  Sex: Female

DRUGS (9)
  1. CYMBALTA [Suspect]
     Indication: ANXIETY
     Dosage: SEE IMAGE
     Route: 048
     Dates: start: 20061130
  2. CYMBALTA [Suspect]
     Indication: ANXIETY
     Dosage: SEE IMAGE
     Route: 048
     Dates: start: 20061201
  3. CITALOPRAM HYDROBROMIDE [Concomitant]
  4. METFORMIN HCL [Concomitant]
  5. ACYCLOVIR [Concomitant]
  6. HYDROXYZINE [Concomitant]
  7. METHOTREXATE [Concomitant]
  8. TYLENOL [Concomitant]
  9. FOLIC ACID [Concomitant]

REACTIONS (4)
  - BODY TEMPERATURE DECREASED [None]
  - MIGRAINE [None]
  - NAUSEA [None]
  - TREMOR [None]
